FAERS Safety Report 10999134 (Version 1)
Quarter: 2015Q2

REPORT INFORMATION
  Report Type: Spontaneous
  Country: US (occurrence: US)
  Receive Date: 20150408
  Receipt Date: 20150408
  Transmission Date: 20150821
  Serious: No
  Sender: FDA-Public Use
  Company Number: US-SA-2014SA060965

PATIENT
  Age: 59 Year
  Sex: Male

DRUGS (3)
  1. ALLEGRA [Suspect]
     Active Substance: FEXOFENADINE HYDROCHLORIDE
     Indication: HYPERSENSITIVITY
     Route: 048
     Dates: start: 20140502, end: 20140503
  2. CLARITIN [Concomitant]
     Active Substance: LORATADINE
  3. LORATADINE. [Concomitant]
     Active Substance: LORATADINE

REACTIONS (7)
  - Muscle spasms [Recovered/Resolved]
  - Malaise [Recovered/Resolved]
  - Wrong technique in drug usage process [Unknown]
  - Dyspepsia [Recovered/Resolved]
  - Nausea [Recovered/Resolved]
  - Diarrhoea [Recovered/Resolved]
  - Vomiting [Recovered/Resolved]

NARRATIVE: CASE EVENT DATE: 20140502
